FAERS Safety Report 9886008 (Version 1)
Quarter: 2014Q1

REPORT INFORMATION
  Report Type: Spontaneous
  Country: US (occurrence: None)
  Receive Date: 20140207
  Receipt Date: 20140207
  Transmission Date: 20141002
  Serious: No
  Sender: FDA-Public Use
  Company Number: None

PATIENT
  Age: 85 Year
  Sex: Female

DRUGS (1)
  1. H.P. ACTHAR [Suspect]
     Indication: GLOMERULONEPHRITIS MEMBRANOUS
     Dosage: INJECT 80 UNITS (1ML) UNDER THE SKIN TWICE WEEKLY FOR 6 MONTHS.
     Route: 058
     Dates: start: 20131031

REACTIONS (1)
  - Local swelling [None]
